FAERS Safety Report 17680981 (Version 3)
Quarter: 2020Q2

REPORT INFORMATION
  Report Type: Spontaneous
  Country: CN (occurrence: CN)
  Receive Date: 20200417
  Receipt Date: 20200430
  Transmission Date: 20200714
  Serious: Yes (Other)
  Sender: FDA-Public Use
  Company Number: CN-UCBSA-2020015183

PATIENT
  Sex: Male

DRUGS (8)
  1. PREDNISOLONE. [Suspect]
     Active Substance: PREDNISOLONE
     Indication: SEIZURE
     Dosage: 2 MILLIGRAM/KILOGRAM, ONCE DAILY (QD)
     Route: 048
  2. LAMOTRIGINE. [Suspect]
     Active Substance: LAMOTRIGINE
     Indication: TONIC CONVULSION
     Dosage: 0.67 MILLIGRAM/KILOGRAM, ONCE DAILY (QD)
  3. NITRAZEPAM [Suspect]
     Active Substance: NITRAZEPAM
     Indication: SEIZURE
     Dosage: 0.48 MILLIGRAM/KILOGRAM
  4. TOPIRAMATE. [Suspect]
     Active Substance: TOPIRAMATE
     Indication: SEIZURE
     Dosage: 1.92 MILLIGRAM/KILOGRAM, ONCE DAILY (QD)
  5. VIGABATRIN. [Suspect]
     Active Substance: VIGABATRIN
     Indication: SEIZURE
     Dosage: 38.46 MILLIGRAM/KILOGRAM, ONCE DAILY (QD)
  6. NITRAZEPAM [Suspect]
     Active Substance: NITRAZEPAM
     Dosage: 1.44 MILLIGRAM/KILOGRAM, ONCE DAILY (QD)
  7. VALPROATE SODIUM. [Suspect]
     Active Substance: VALPROATE SODIUM
     Indication: SEIZURE
     Dosage: 18.4 MILLIGRAM/KILOGRAM, ONCE DAILY (QD)
     Route: 048
  8. KEPPRA [Suspect]
     Active Substance: LEVETIRACETAM
     Indication: SEIZURE
     Dosage: 20 MILLIGRAM/KILOGRAM, ONCE DAILY (QD)

REACTIONS (2)
  - Multiple-drug resistance [Unknown]
  - Tonic convulsion [Unknown]
